FAERS Safety Report 14317283 (Version 1)
Quarter: 2017Q4

REPORT INFORMATION
  Report Type: Spontaneous
  Country: LB (occurrence: LB)
  Receive Date: 20171222
  Receipt Date: 20171222
  Transmission Date: 20180321
  Serious: Yes (Other)
  Sender: FDA-Public Use
  Company Number: LB-CONCORDIA PHARMACEUTICALS INC.-GSH201712-006665

PATIENT
  Age: 38 Year
  Sex: Male

DRUGS (1)
  1. DIGOXIN. [Suspect]
     Active Substance: DIGOXIN

REACTIONS (2)
  - Toxicity to various agents [Unknown]
  - Cardiac contusion [Unknown]
